FAERS Safety Report 9323030 (Version 2)
Quarter: 2013Q4

REPORT INFORMATION
  Report Type: Spontaneous
  Country: NL (occurrence: NL)
  Receive Date: 20130603
  Receipt Date: 20131203
  Transmission Date: 20140711
  Serious: Yes (Hospitalization, Other)
  Sender: FDA-Public Use
  Company Number: NL-AMGEN-NLDSP2013038093

PATIENT
  Age: 79 Year
  Sex: Female
  Weight: 58 kg

DRUGS (12)
  1. PROLIA [Suspect]
     Indication: OSTEOPOROSIS
     Dosage: 60 MG, Q6MO
     Route: 065
     Dates: start: 20120301
  2. PREDNISOLONE [Suspect]
     Indication: POLYMYALGIA RHEUMATICA
     Dosage: 5 MG, QD
     Route: 065
     Dates: start: 2002
  3. NEXIUM                             /01479302/ [Concomitant]
     Dosage: 40 MG, QD
  4. HYDROCHLOROTHIAZIDE [Concomitant]
     Dosage: 25 MG, QD
  5. SELOKEEN                           /00376902/ [Concomitant]
     Dosage: 200 MG, QD
  6. AMITRIPTYLINE [Concomitant]
     Dosage: 20 MG, QD
  7. AMOXICILLINE                       /00249602/ [Concomitant]
     Dosage: 500 MG, TID
  8. CALCI CHEW D3 [Concomitant]
     Dosage: 1 DF, QD; 1000MG/800IE
  9. PANADOL ATROSE [Concomitant]
     Dosage: 1000 MG, BID
  10. TEMAZEPAM [Concomitant]
     Dosage: 10 MG, QD
  11. DIOVAN [Concomitant]
     Dosage: 160 MG, BID
  12. ASCAL CARDIO [Concomitant]
     Dosage: 100 MG, QD

REACTIONS (4)
  - Liver abscess [Recovering/Resolving]
  - Pyrexia [Recovering/Resolving]
  - Malaise [Recovering/Resolving]
  - Drug interaction [Unknown]
